FAERS Safety Report 7764204-2 (Version None)
Quarter: 2011Q3

REPORT INFORMATION
  Report Type: 
  Country: None (occurrence: None)
  Receive Date: 20110921
  Receipt Date: 20110909
  Transmission Date: 20111222
  Serious: Yes (Hospitalization)
  Sender: FDA-Public Use
  Company Number: PHHY2011FR82783

PATIENT
  Sex: Female

DRUGS (8)
  1. SULFARLEM [Concomitant]
     Dosage: UNK UKN, UNK
  2. ABILIFY [Suspect]
     Dosage: 14, TOTAL DOSE
     Route: 048
     Dates: start: 20101212, end: 20101212
  3. LEXOMIL [Suspect]
     Dosage: 30, TOTAL DOSE
     Route: 048
     Dates: start: 20101212, end: 20101212
  4. ZOLPIDEM [Concomitant]
     Dosage: UNK UKN, UNK
  5. ANAFRANIL [Suspect]
     Dosage: 75  TOTAL DOSE
     Route: 048
     Dates: start: 20101212, end: 20101212
  6. LAMOTRIGINE [Suspect]
     Dosage: 14, TOTAL DOSE
     Route: 048
     Dates: start: 20101212, end: 20101212
  7. ESPERAL [Concomitant]
     Dosage: UNK UKN, UNK
  8. ZOPICLONE [Suspect]
     Dosage: 14, TOTAL DOSE
     Route: 048
     Dates: start: 20101212, end: 20101212

REACTIONS (4)
  - BRADYPHRENIA [None]
  - SOMNOLENCE [None]
  - TOXICITY TO VARIOUS AGENTS [None]
  - ANTIDEPRESSANT DRUG LEVEL INCREASED [None]
